FAERS Safety Report 8341391 (Version 8)
Quarter: 2014Q3

REPORT INFORMATION
  Report Type: Spontaneous
  Country: US (occurrence: US)
  Receive Date: 20111202
  Receipt Date: 20140804
  Transmission Date: 20150326
  Serious: Yes (Hospitalization, Disabling, Other)
  Sender: FDA-Public Use
  Company Number: US-009507513-2011SP046645

PATIENT
  Sex: Female
  Weight: 58.97 kg

DRUGS (3)
  1. NUVARING [Suspect]
     Active Substance: ETHINYL ESTRADIOL\ETONOGESTREL
     Dosage: UNK
     Dates: end: 200810
  2. MINERALS (UNSPECIFIED) (+) VITAMINS (UNSPECIFIED) [Concomitant]
     Indication: VITAMIN SUPPLEMENTATION
     Dosage: 1 DF, QD
     Dates: start: 200808
  3. NUVARING [Suspect]
     Active Substance: ETHINYL ESTRADIOL\ETONOGESTREL
     Indication: CONTRACEPTION
     Dosage: UNK
     Route: 067
     Dates: start: 2003, end: 200808

REACTIONS (20)
  - Hydrocephalus [Unknown]
  - Nasopharyngitis [Recovered/Resolved]
  - Cerebrovascular accident [Unknown]
  - Neck pain [Recovering/Resolving]
  - Cervicitis [Unknown]
  - Hypersensitivity [Recovered/Resolved]
  - Gastric disorder [Unknown]
  - Constipation [Unknown]
  - Migraine [Unknown]
  - Bronchospasm [Recovered/Resolved]
  - Headache [Unknown]
  - Papilloma viral infection [Unknown]
  - Musculoskeletal pain [Recovering/Resolving]
  - Haemorrhage intracranial [Unknown]
  - Cervical dysplasia [Unknown]
  - Palpitations [Unknown]
  - Urticaria [Recovered/Resolved]
  - Chronic gastritis [Unknown]
  - Ligament sprain [Unknown]
  - Skin abrasion [Unknown]

NARRATIVE: CASE EVENT DATE: 20030728
